FAERS Safety Report 5316957-0 (Version None)
Quarter: 2007Q2

REPORT INFORMATION
  Report Type: 
  Country: None (occurrence: None)
  Receive Date: 20070504
  Receipt Date: 20070424
  Transmission Date: 20071010
  Serious: Yes (Other)
  Sender: FDA-Public Use
  Company Number: JP-PFIZER INC-2007033530

PATIENT
  Age: 59 Year
  Sex: Female

DRUGS (7)
  1. ZITHROMAC [Suspect]
     Indication: UPPER RESPIRATORY TRACT INFLAMMATION
     Dosage: DAILY DOSE:500MG
     Dates: start: 20070419, end: 20070419
  2. MUCODYNE [Concomitant]
     Dosage: DAILY DOSE:500MG
     Dates: start: 20070419, end: 20070419
  3. ASPIRIN [Concomitant]
  4. COROHERSER [Concomitant]
  5. LOCHOL [Concomitant]
  6. OMEPRAZOLE [Concomitant]
  7. CYANOCOBALAMIN [Concomitant]

REACTIONS (1)
  - LOSS OF CONSCIOUSNESS [None]
